FAERS Safety Report 4544618-4 (Version None)
Quarter: 2005Q1

REPORT INFORMATION
  Report Type: 
  Country: None (occurrence: None)
  Receive Date: 20050105
  Receipt Date: 20050103
  Transmission Date: 20050727
  Serious: Yes (Life-Threatening, Other)
  Sender: FDA-Public Use
  Company Number: US-BRISTOL-MYERS SQUIBB COMPANY-12810842

PATIENT
  Age: 17 Year
  Sex: Female

DRUGS (1)
  1. COUMADIN [Suspect]

REACTIONS (2)
  - ARTERIAL HAEMORRHAGE [None]
  - THORACOTOMY [None]
